FAERS Safety Report 5792670-0 (Version None)
Quarter: 2008Q2

REPORT INFORMATION
  Report Type: 
  Country: None (occurrence: None)
  Receive Date: 20080624
  Receipt Date: 20080612
  Transmission Date: 20081010
  Serious: Yes (Life-Threatening)
  Sender: FDA-Public Use
  Company Number: 1-16275808

PATIENT
  Age: 27 Year
  Sex: Female

DRUGS (5)
  1. CARBAMAZEPINE [Suspect]
     Indication: AGITATION
     Dosage: ORAL
     Route: 048
     Dates: start: 20040101, end: 20040101
  2. CARBAMAZEPINE [Suspect]
     Indication: PSYCHOTIC DISORDER
     Dosage: ORAL
     Route: 048
     Dates: start: 20040101, end: 20040101
  3. VALPROATE SODIUM [Suspect]
     Indication: AGITATION
     Dates: start: 20040101, end: 20040101
  4. VALPROATE SODIUM [Suspect]
     Indication: PSYCHOTIC DISORDER
     Dates: start: 20040101, end: 20040101
  5. LEVOSULPRIDE [Concomitant]

REACTIONS (11)
  - APATHY [None]
  - BRADYCARDIA [None]
  - BREATH ODOUR [None]
  - HYPERGLYCAEMIA [None]
  - HYPOTHYROIDISM [None]
  - KETOACIDOSIS [None]
  - MUCOSAL DRYNESS [None]
  - MYXOEDEMA COMA [None]
  - PALLOR [None]
  - PERIORBITAL OEDEMA [None]
  - PERIPHERAL COLDNESS [None]
